FAERS Safety Report 10747836 (Version 2)
Quarter: 2015Q1

REPORT INFORMATION
  Report Type: Report from Study
  Country: CA (occurrence: None)
  Receive Date: 20150127
  Receipt Date: 20150212
  Transmission Date: 20150721
  Serious: Yes (Other)
  Sender: FDA-Public Use
  Company Number: 2015AP005318

PATIENT
  Age: 23 Year
  Sex: Female
  Weight: 56 kg

DRUGS (7)
  1. VITAMIN D (ERGOCALCIFEROL) [Concomitant]
     Active Substance: ERGOCALCIFEROL
  2. DEFERIPRONE (DEFERIPRONE) TABLET [Suspect]
     Active Substance: DEFERIPRONE
     Indication: IRON OVERLOAD
     Route: 048
     Dates: start: 20110817, end: 201501
  3. CALCIUM [Concomitant]
     Active Substance: CALCIUM
  4. AVIANE (ETHINYLESTRADIOL, LEVONORGESTREL) [Concomitant]
  5. DEFEROXAMINE [Concomitant]
     Active Substance: DEFEROXAMINE\DEFEROXAMINE MESYLATE
  6. PANTOPRAZOLE [Concomitant]
     Active Substance: PANTOPRAZOLE SODIUM
  7. CALTRATE D (CALCIUM, COLECALCIFEROL) [Concomitant]

REACTIONS (5)
  - Viral infection [None]
  - Agranulocytosis [None]
  - Vomiting [None]
  - Influenza like illness [None]
  - Nausea [None]

NARRATIVE: CASE EVENT DATE: 20150113
